FAERS Safety Report 16225399 (Version 3)
Quarter: 2019Q3

REPORT INFORMATION
  Report Type: Spontaneous
  Country: US (occurrence: US)
  Receive Date: 20190422
  Receipt Date: 20190710
  Transmission Date: 20191004
  Serious: No
  Sender: FDA-Public Use
  Company Number: US-ACTELION-A-NJ2018-165953

PATIENT
  Sex: Female

DRUGS (3)
  1. ADCIRCA [Suspect]
     Active Substance: TADALAFIL
     Indication: PRODUCT USED FOR UNKNOWN INDICATION
     Route: 065
  2. LASIX [Concomitant]
     Active Substance: FUROSEMIDE
  3. TRACLEER [Suspect]
     Active Substance: BOSENTAN
     Indication: PULMONARY ARTERIAL HYPERTENSION
     Dosage: 125 MG, BID
     Route: 048
     Dates: start: 201501

REACTIONS (10)
  - Oedema [Unknown]
  - Nasal congestion [Unknown]
  - Seasonal allergy [Unknown]
  - Pruritus [Not Recovered/Not Resolved]
  - Anaemia [Unknown]
  - Fluid retention [Unknown]
  - Dyspnoea [Unknown]
  - Nasopharyngitis [Unknown]
  - Arthralgia [Unknown]
  - Ear infection [Unknown]
